FAERS Safety Report 9604410 (Version 3)
Quarter: 2013Q4

REPORT INFORMATION
  Report Type: Spontaneous
  Country: US (occurrence: US)
  Receive Date: 20131008
  Receipt Date: 20131111
  Transmission Date: 20140711
  Serious: No
  Sender: FDA-Public Use
  Company Number: US-VERTEX PHARMACEUTICALS INC-2013-009925

PATIENT
  Age: 55 Year
  Sex: Male
  Weight: 81.63 kg

DRUGS (3)
  1. INCIVEK [Suspect]
     Indication: HEPATITIS C
     Dosage: 750 MG, TID
     Route: 048
     Dates: start: 20130808, end: 20130918
  2. REBETOL [Suspect]
     Indication: HEPATITIS C
     Dosage: 400MG AM /600MG PM
     Route: 048
     Dates: start: 20130808, end: 20130918
  3. PEGINTRON [Suspect]
     Indication: HEPATITIS C
     Dosage: 120 ?G, QW
     Route: 058
     Dates: start: 20130808, end: 20130918

REACTIONS (1)
  - Drug ineffective [Not Recovered/Not Resolved]
